FAERS Safety Report 6201576-4 (Version None)
Quarter: 2009Q2

REPORT INFORMATION
  Report Type: 
  Country: None (occurrence: None)
  Receive Date: 20090526
  Receipt Date: 20090522
  Transmission Date: 20091009
  Serious: Yes (Death)
  Sender: FDA-Public Use
  Company Number: BR-ROCHE-634417

PATIENT
  Sex: Female
  Weight: 68 kg

DRUGS (3)
  1. BONIVA [Suspect]
     Indication: OSTEOPOROSIS
     Route: 048
     Dates: start: 20080101, end: 20090520
  2. OXCORD [Concomitant]
     Indication: HYPERTENSION
     Dosage: STARTED MANY YEARS AGO
     Dates: end: 20090520
  3. FORASEQ [Concomitant]
     Indication: ASTHMA
     Dosage: STARTED MANY YEARS AGO
     Dates: end: 20090520

REACTIONS (1)
  - ROAD TRAFFIC ACCIDENT [None]
